FAERS Safety Report 6274255-5 (Version None)
Quarter: 2009Q3

REPORT INFORMATION
  Report Type: 
  Country: None (occurrence: None)
  Receive Date: 20090720
  Receipt Date: 20090709
  Transmission Date: 20100115
  Serious: Yes (Other)
  Sender: FDA-Public Use
  Company Number: US-JNJFOC-20090703489

PATIENT
  Age: 14 Year
  Sex: Male
  Weight: 39.01 kg

DRUGS (1)
  1. INVEGA [Suspect]
     Indication: AFFECTIVE DISORDER
     Route: 048

REACTIONS (4)
  - DIZZINESS [None]
  - MYALGIA [None]
  - RESPIRATION ABNORMAL [None]
  - SWOLLEN TONGUE [None]
